FAERS Safety Report 21170916 (Version 2)
Quarter: 2022Q3

REPORT INFORMATION
  Report Type: Report from Study
  Country: JP (occurrence: JP)
  Receive Date: 20220804
  Receipt Date: 20220830
  Transmission Date: 20221026
  Serious: Yes (Hospitalization, Other)
  Sender: FDA-Public Use
  Company Number: JP-ONO-2022JP021303

PATIENT
  Age: 71 Year
  Sex: Male
  Weight: 57.1 kg

DRUGS (12)
  1. BRAFTOVI [Suspect]
     Active Substance: ENCORAFENIB
     Indication: Colon cancer
     Dosage: 300 MG, EVERYDAY
     Route: 048
     Dates: start: 20210510, end: 20211112
  2. BRAFTOVI [Suspect]
     Active Substance: ENCORAFENIB
     Dosage: 300 MG, EVERYDAY
     Route: 048
     Dates: start: 20211122
  3. CETUXIMAB [Concomitant]
     Active Substance: CETUXIMAB
     Indication: Colon cancer
     Dosage: 400 MG/M2
     Route: 065
     Dates: start: 20210510, end: 20210510
  4. CETUXIMAB [Concomitant]
     Active Substance: CETUXIMAB
     Dosage: 250 MG/M2
     Route: 065
     Dates: start: 20210517, end: 20210726
  5. CETUXIMAB [Concomitant]
     Active Substance: CETUXIMAB
     Dosage: 500 MG/M2
     Route: 065
     Dates: start: 20210802, end: 20210802
  6. CETUXIMAB [Concomitant]
     Active Substance: CETUXIMAB
     Dosage: 250 MG/M2
     Route: 065
     Dates: start: 20210816, end: 20211108
  7. CETUXIMAB [Concomitant]
     Active Substance: CETUXIMAB
     Dosage: 400 MG/M2
     Route: 065
     Dates: start: 20211122, end: 20211122
  8. CETUXIMAB [Concomitant]
     Active Substance: CETUXIMAB
     Dosage: 250 MG/M2
     Route: 065
     Dates: start: 20211129, end: 20211220
  9. CETUXIMAB [Concomitant]
     Active Substance: CETUXIMAB
     Dosage: 500 MG/M2
     Route: 065
     Dates: start: 20211227, end: 20211227
  10. CETUXIMAB [Concomitant]
     Active Substance: CETUXIMAB
     Dosage: 250 MG/M2
     Route: 065
     Dates: start: 20220110, end: 20220307
  11. CETUXIMAB [Concomitant]
     Active Substance: CETUXIMAB
     Dosage: 500 MG/M2
     Route: 065
     Dates: start: 20220314, end: 20220314
  12. CETUXIMAB [Concomitant]
     Active Substance: CETUXIMAB
     Dosage: 250 MG/M2
     Route: 065
     Dates: start: 20220328

REACTIONS (4)
  - Pneumonia bacterial [Recovered/Resolved]
  - Pyrexia [Recovered/Resolved]
  - Pyrexia [Recovered/Resolved]
  - Nausea [Recovering/Resolving]

NARRATIVE: CASE EVENT DATE: 20210511
